FAERS Safety Report 20770503 (Version 1)
Quarter: 2022Q2

REPORT INFORMATION
  Report Type: Spontaneous
  Country: US (occurrence: None)
  Receive Date: 20220429
  Receipt Date: 20220429
  Transmission Date: 20220720
  Serious: Yes (Other)
  Sender: FDA-Public Use
  Company Number: None

PATIENT
  Age: 66 Year
  Sex: Female
  Weight: 69 kg

DRUGS (10)
  1. PAXLOVID [Suspect]
     Active Substance: NIRMATRELVIR\RITONAVIR
     Indication: COVID-19
     Dosage: FREQUENCY : TWICE A DAY;?
     Dates: start: 20220427, end: 20220428
  2. advair, stopped before Paxlovid [Concomitant]
  3. Qvar, during Paxlovid [Concomitant]
  4. DICYCLOMINE [Concomitant]
     Active Substance: DICYCLOMINE HYDROCHLORIDE
  5. DELSYM [Concomitant]
     Active Substance: DEXTROMETHORPHAN
  6. BUPROPION [Concomitant]
     Active Substance: BUPROPION
  7. HYOSCYAMINE [Concomitant]
     Active Substance: HYOSCYAMINE
  8. ALBUTEROL [Concomitant]
     Active Substance: ALBUTEROL
  9. ACETAMINOPHEN [Concomitant]
     Active Substance: ACETAMINOPHEN
  10. IBUPROFEN [Concomitant]
     Active Substance: IBUPROFEN

REACTIONS (4)
  - Abdominal pain upper [None]
  - Diarrhoea [None]
  - Hyperhidrosis [None]
  - Loss of consciousness [None]

NARRATIVE: CASE EVENT DATE: 20220428
